FAERS Safety Report 23466579 (Version 1)
Quarter: 2024Q1

REPORT INFORMATION
  Report Type: Spontaneous
  Country: US (occurrence: US)
  Receive Date: 20240201
  Receipt Date: 20240201
  Transmission Date: 20240409
  Serious: No
  Sender: FDA-Public Use
  Company Number: US-BRISTOL-MYERS SQUIBB COMPANY-2024-016765

PATIENT
  Age: 76 Year
  Sex: Female
  Weight: 132.9 kg

DRUGS (1)
  1. POMALYST [Suspect]
     Active Substance: POMALIDOMIDE
     Indication: Plasma cell myeloma
     Dosage: 21D OF 28DAYS
     Route: 048
     Dates: start: 20240101

REACTIONS (3)
  - Decreased appetite [Not Recovered/Not Resolved]
  - Fatigue [Not Recovered/Not Resolved]
  - Gout [Not Recovered/Not Resolved]
